FAERS Safety Report 18326939 (Version 8)
Quarter: 2021Q2

REPORT INFORMATION
  Report Type: Report from Study
  Country: DE (occurrence: DE)
  Receive Date: 20200930
  Receipt Date: 20210408
  Transmission Date: 20210717
  Serious: Yes (Hospitalization)
  Sender: FDA-Public Use
  Company Number: DE-ROCHE-2677568

PATIENT
  Age: 48 Year
  Sex: Female
  Weight: 73 kg

DRUGS (13)
  1. FENISTIL [Concomitant]
     Active Substance: DIMETHINDENE
     Dates: start: 20200825
  2. PLACEBO [Suspect]
     Active Substance: UNSPECIFIED INGREDIENT
     Indication: HER2 POSITIVE BREAST CANCER
     Dosage: DOSE OF LAST BLINDED ATEZOLIZUMAB ADMINISTERED PRIOR TO AE ONSET.?DATE OF MOST RECENT DOSE OF BLINDE
     Route: 042
     Dates: start: 20200630
  3. TRASTUZUMAB. [Suspect]
     Active Substance: TRASTUZUMAB
     Dosage: MAINTAINAINCE DOSE
     Route: 041
     Dates: start: 20200915
  4. L?THYROXIN [Concomitant]
     Active Substance: LEVOTHYROXINE SODIUM
     Indication: HYPOTHYROIDISM
     Dates: start: 2015
  5. CYCLOPHOSPHAMIDE. [Suspect]
     Active Substance: CYCLOPHOSPHAMIDE
     Indication: HER2 POSITIVE BREAST CANCER
     Dosage: DOSE OF LAST CYCLOPHOSPHAMIDE  ADMINISTERED 1074 MG?DATE OF MOST RECENT DOSE OF CYCLOPHOSPHAMIDE PRI
     Route: 042
     Dates: start: 20200630
  6. PACLITAXEL. [Suspect]
     Active Substance: PACLITAXEL
     Indication: HER2 POSITIVE BREAST CANCER
     Dosage: DOSE OF LAST PACLITAXEL ADMINISTRATED PRIOR TO ADVERSE EVENT 144 MG. ?DATE OF MOST RECENT DOSE OF PA
     Route: 042
     Dates: start: 20200825
  7. TRASTUZUMAB. [Suspect]
     Active Substance: TRASTUZUMAB
     Indication: HER2 POSITIVE BREAST CANCER
     Dosage: LOADING DOSE? DOSE OF LAST TRASTUZUMAB ADMINISTERED PRIOR TO AE ONSET 584 MG
     Route: 041
     Dates: start: 20200825
  8. METOPROLOL. [Concomitant]
     Active Substance: METOPROLOL
     Indication: ARRHYTHMIA
  9. DEXAMETHASONE. [Concomitant]
     Active Substance: DEXAMETHASONE
     Route: 048
     Dates: start: 20200630
  10. ADVANTAN [Concomitant]
     Active Substance: METHYLPREDNISOLONE ACEPONATE
     Indication: RASH
     Dates: start: 20201105
  11. PERTUZUMAB. [Suspect]
     Active Substance: PERTUZUMAB
     Indication: HER2 POSITIVE BREAST CANCER
     Dosage: DOSE OF LAST PERTUZUMAB ADMINISTERED PRIOR TO AE ONSET 840 MG. THIS IS THE MOST RECENT DOSE.?LOADING
     Route: 042
     Dates: start: 20200825
  12. PERTUZUMAB. [Suspect]
     Active Substance: PERTUZUMAB
     Dosage: MAINTAINENCE DOSE
     Route: 042
     Dates: start: 20200915
  13. DOXORUBICIN [Suspect]
     Active Substance: DOXORUBICIN
     Indication: HER2 POSITIVE BREAST CANCER
     Dosage: DOSE OF LAST DOXORUBICIN ADMINISTERED PRIOR TO SAE ONSET 107.4 MG?DATE OF MOST RECENT DOSE OF DOXORU
     Route: 042
     Dates: start: 20200630

REACTIONS (1)
  - Pneumonitis [Recovered/Resolved]

NARRATIVE: CASE EVENT DATE: 20200914
